FAERS Safety Report 7795383-9 (Version None)
Quarter: 2011Q3

REPORT INFORMATION
  Report Type: 
  Country: None (occurrence: None)
  Receive Date: 20110930
  Receipt Date: 20110913
  Transmission Date: 20111222
  Serious: Yes (Other)
  Sender: FDA-Public Use
  Company Number: JPI-P-017048

PATIENT
  Age: 62 Year
  Sex: Female

DRUGS (10)
  1. BUPROPION HCL [Concomitant]
  2. DEXTROAMPHETAMINE [Concomitant]
  3. CELECOXIB [Concomitant]
  4. DESLORATADINE [Concomitant]
  5. XYREM [Suspect]
     Indication: NARCOLEPSY
     Dosage: 4.5 GM (2.25 GM, 2 IN 1 D, ORAL, 9 GM (4.5 GM, 2 IN 1 D), ORAL
     Route: 048
     Dates: start: 20110805
  6. XYREM [Suspect]
     Indication: SLEEP APNOEA SYNDROME
     Dosage: 4.5 GM (2.25 GM, 2 IN 1 D, ORAL, 9 GM (4.5 GM, 2 IN 1 D), ORAL
     Route: 048
     Dates: start: 20110805
  7. XYREM [Suspect]
     Indication: NARCOLEPSY
     Dosage: 4.5 GM (2.25 GM, 2 IN 1 D, ORAL, 9 GM (4.5 GM, 2 IN 1 D), ORAL
     Route: 048
     Dates: start: 20090601
  8. XYREM [Suspect]
     Indication: SLEEP APNOEA SYNDROME
     Dosage: 4.5 GM (2.25 GM, 2 IN 1 D, ORAL, 9 GM (4.5 GM, 2 IN 1 D), ORAL
     Route: 048
     Dates: start: 20090601
  9. ASPIRIN [Concomitant]
  10. QUETIAPINE [Concomitant]

REACTIONS (3)
  - TOE AMPUTATION [None]
  - FOOT AMPUTATION [None]
  - OSTEOMYELITIS [None]
